FAERS Safety Report 20289800 (Version 2)
Quarter: 2022Q1

REPORT INFORMATION
  Report Type: Spontaneous
  Country: GB (occurrence: GB)
  Receive Date: 20220104
  Receipt Date: 20220315
  Transmission Date: 20220424
  Serious: Yes (Hospitalization, Other)
  Sender: FDA-Public Use
  Company Number: GB-ROCHE-2911088

PATIENT
  Age: 50 Year
  Sex: Female
  Weight: 77 kg

DRUGS (45)
  1. BEVACIZUMAB [Suspect]
     Active Substance: BEVACIZUMAB
     Indication: Non-small cell lung cancer metastatic
     Dosage: 1200 MILLIGRAM
     Route: 065
     Dates: start: 20210811
  2. ATEZOLIZUMAB [Suspect]
     Active Substance: ATEZOLIZUMAB
     Indication: Non-small cell lung cancer metastatic
     Dosage: 1200 MILLIGRAM, Q3WK
     Route: 041
     Dates: start: 20210811
  3. CARBOPLATIN [Suspect]
     Active Substance: CARBOPLATIN
     Indication: Non-small cell lung cancer metastatic
     Dosage: 240 MILLIGRAM
     Route: 065
     Dates: start: 20210901
  4. CARBOPLATIN [Suspect]
     Active Substance: CARBOPLATIN
     Dosage: 630 MILLIGRAM, QD
     Route: 065
     Dates: start: 20210811
  5. PACLITAXEL [Suspect]
     Active Substance: PACLITAXEL
     Indication: Non-small cell lung cancer metastatic
     Dosage: 300 MILLIGRAM, QD
     Route: 065
     Dates: start: 20210811
  6. CALCIUM CARBONATE [Concomitant]
     Active Substance: CALCIUM CARBONATE
     Indication: Prophylaxis
     Dosage: UNK
  7. CHLORPHENIRAMINE MALEATE [Concomitant]
     Active Substance: CHLORPHENIRAMINE MALEATE
     Dosage: 10 MILLIGRAM
     Route: 065
     Dates: start: 20210722, end: 20210722
  8. CHLORPHENIRAMINE MALEATE [Concomitant]
     Active Substance: CHLORPHENIRAMINE MALEATE
     Dosage: 10 MILLIGRAM
     Route: 065
     Dates: start: 20210811, end: 20210811
  9. CHLORPHENIRAMINE MALEATE [Concomitant]
     Active Substance: CHLORPHENIRAMINE MALEATE
     Dosage: 10 MILLIGRAM
     Route: 065
     Dates: start: 20210901, end: 20210901
  10. CHLORPHENIRAMINE MALEATE [Concomitant]
     Active Substance: CHLORPHENIRAMINE MALEATE
     Dosage: 10 MILLIGRAM
     Route: 065
     Dates: start: 20210922, end: 20210922
  11. DEXAMETHASONE [Concomitant]
     Active Substance: DEXAMETHASONE
     Dosage: 20 MILLIGRAM
     Route: 065
     Dates: start: 20210722, end: 20210722
  12. DEXAMETHASONE [Concomitant]
     Active Substance: DEXAMETHASONE
     Dosage: 20 MILLIGRAM
     Route: 065
     Dates: start: 20210811, end: 20210811
  13. DEXAMETHASONE [Concomitant]
     Active Substance: DEXAMETHASONE
     Dosage: 20 MILLIGRAM
     Route: 065
     Dates: start: 20210901, end: 20210901
  14. DEXAMETHASONE [Concomitant]
     Active Substance: DEXAMETHASONE
     Dosage: 20 MILLIGRAM
     Route: 065
     Dates: start: 20210922, end: 20210922
  15. DEXAMETHASONE [Concomitant]
     Active Substance: DEXAMETHASONE
     Dosage: UNK, TID
     Route: 065
     Dates: start: 20210815
  16. DEXAMETHASONE [Concomitant]
     Active Substance: DEXAMETHASONE
  17. DEXAMETHASONE [Concomitant]
     Active Substance: DEXAMETHASONE
  18. DEXAMETHASONE [Concomitant]
     Active Substance: DEXAMETHASONE
  19. ONDANSETRON [Concomitant]
     Active Substance: ONDANSETRON
     Dosage: 8 MILLIGRAM
     Route: 065
     Dates: start: 20210722, end: 20210722
  20. ONDANSETRON [Concomitant]
     Active Substance: ONDANSETRON
     Dosage: 8 MILLIGRAM
     Route: 065
     Dates: start: 20210811, end: 20210811
  21. ONDANSETRON [Concomitant]
     Active Substance: ONDANSETRON
     Dosage: 8 MILLIGRAM
     Route: 065
     Dates: start: 20210901, end: 20210901
  22. ONDANSETRON [Concomitant]
     Active Substance: ONDANSETRON
     Dosage: 8 MILLIGRAM
     Route: 065
     Dates: start: 20210922, end: 20210922
  23. RANITIDINE [Concomitant]
     Active Substance: RANITIDINE
     Dosage: 20 MILLIGRAM
     Route: 065
     Dates: start: 20210722, end: 20210722
  24. RANITIDINE [Concomitant]
     Active Substance: RANITIDINE
     Dosage: 50 MILLIGRAM
     Route: 065
     Dates: start: 20210811, end: 20210811
  25. RANITIDINE [Concomitant]
     Active Substance: RANITIDINE
     Dosage: 50 MILLIGRAM
     Route: 065
     Dates: start: 20210901, end: 20210901
  26. RANITIDINE [Concomitant]
     Active Substance: RANITIDINE
     Dosage: 50 MILLIGRAM
     Route: 065
     Dates: start: 20210922, end: 20210922
  27. CYCLIZINE [Concomitant]
     Active Substance: CYCLIZINE
     Dosage: UNK UNK, AS NECESSARY
     Route: 065
  28. CYCLIZINE [Concomitant]
     Active Substance: CYCLIZINE
  29. CYCLIZINE [Concomitant]
     Active Substance: CYCLIZINE
  30. DOXYCYCLINE [Concomitant]
     Active Substance: DOXYCYCLINE
     Dosage: UNK, QD
     Route: 065
     Dates: start: 20210905, end: 20210911
  31. DALTEPARIN [Concomitant]
     Active Substance: DALTEPARIN
     Dosage: UNK UNK, QD
     Route: 065
     Dates: start: 20210905
  32. DOMPERIDONE [Concomitant]
     Active Substance: DOMPERIDONE
     Indication: Prophylaxis
     Dosage: UNK, TID
     Route: 065
     Dates: start: 20210815
  33. IBUPROFEN [Concomitant]
     Active Substance: IBUPROFEN
     Dosage: UNK, AS NECESSARY
     Route: 065
  34. MODAFINIL [Concomitant]
     Active Substance: MODAFINIL
     Dosage: UNK, TID
     Route: 065
  35. MODAFINIL [Concomitant]
     Active Substance: MODAFINIL
  36. MODAFINIL [Concomitant]
     Active Substance: MODAFINIL
  37. MORPHINE [Concomitant]
     Active Substance: MORPHINE
     Dosage: UNK, BID
     Route: 065
  38. OMEPRAZOLE [Concomitant]
     Active Substance: OMEPRAZOLE
     Indication: Prophylaxis
     Dosage: UNK, QD
     Route: 065
  39. PREGABALIN [Concomitant]
     Active Substance: PREGABALIN
     Dosage: UNK, QD
     Route: 065
     Dates: start: 20210921
  40. SENNA [SENNA ALEXANDRINA LEAF] [Concomitant]
     Indication: Prophylaxis
     Dosage: UNK, QD
     Route: 065
  41. CHOLECALCIFEROL [Concomitant]
     Active Substance: CHOLECALCIFEROL
     Indication: Prophylaxis
     Dosage: UNK UNK, QD
     Route: 065
  42. METHYLPREDNISOLONE [Concomitant]
     Active Substance: METHYLPREDNISOLONE
     Dosage: UNK, QD
     Route: 065
     Dates: start: 20211220, end: 20211223
  43. METOCLOPRAMIDE [Concomitant]
     Active Substance: METOCLOPRAMIDE
     Dosage: AS NECESSARY
     Route: 065
  44. PREDNISOLONE [Concomitant]
     Active Substance: PREDNISOLONE
     Dosage: UNK, QD
     Route: 065
     Dates: start: 20211224
  45. IMODIUM [Concomitant]
     Active Substance: LOPERAMIDE HYDROCHLORIDE
     Dosage: AS NECESSARY
     Dates: start: 20211102

REACTIONS (3)
  - Pulmonary embolism [Recovering/Resolving]
  - Vomiting [Recovered/Resolved with Sequelae]
  - Alopecia [Not Recovered/Not Resolved]

NARRATIVE: CASE EVENT DATE: 20210812
